FAERS Safety Report 20076082 (Version 1)
Quarter: 2021Q4

REPORT INFORMATION
  Report Type: Spontaneous
  Country: US (occurrence: US)
  Receive Date: 20211116
  Receipt Date: 20211116
  Transmission Date: 20220303
  Serious: No
  Sender: FDA-Public Use
  Company Number: US-AMGEN-USASP2021171738

PATIENT
  Sex: Male

DRUGS (3)
  1. EPOGEN [Suspect]
     Active Substance: ERYTHROPOIETIN
     Indication: Anaemia macrocytic
     Dosage: 6000 UNIT (ON FRIDAYS)
     Route: 065
     Dates: start: 202007
  2. EPOGEN [Suspect]
     Active Substance: ERYTHROPOIETIN
     Indication: Aplasia pure red cell
     Dosage: 14000 UNIT
     Route: 065
     Dates: start: 20211015
  3. EPOGEN [Suspect]
     Active Substance: ERYTHROPOIETIN
     Indication: End stage renal disease

REACTIONS (1)
  - Antibody test [Unknown]
